FAERS Safety Report 4398544-4 (Version None)
Quarter: 2004Q3

REPORT INFORMATION
  Report Type: 
  Country: None (occurrence: None)
  Receive Date: 20040715
  Receipt Date: 20040706
  Transmission Date: 20050211
  Serious: Yes (Disabling)
  Sender: FDA-Public Use
  Company Number: NL-GLAXOSMITHKLINE-B0338522A

PATIENT
  Age: 49 Year
  Sex: Male

DRUGS (3)
  1. PAROXETINE HCL [Suspect]
     Indication: INSOMNIA
     Dosage: 20MG PER DAY
     Route: 065
     Dates: start: 19990901, end: 20021001
  2. ZOPICLON [Concomitant]
     Dosage: 7.5MG PER DAY
     Route: 065
     Dates: start: 19990901
  3. CAMCOLIT [Concomitant]
     Dosage: 800MG UNKNOWN
     Route: 065

REACTIONS (6)
  - BEDRIDDEN [None]
  - DIFFICULTY IN WALKING [None]
  - FEELING ABNORMAL [None]
  - PAIN IN EXTREMITY [None]
  - TREATMENT NONCOMPLIANCE [None]
  - WALKING DISABILITY [None]
